FAERS Safety Report 4650162-6 (Version None)
Quarter: 2005Q2

REPORT INFORMATION
  Report Type: 
  Country: None (occurrence: None)
  Receive Date: 20050428
  Receipt Date: 20050420
  Transmission Date: 20051028
  Serious: Yes (Death)
  Sender: FDA-Public Use
  Company Number: 2005062522

PATIENT
  Age: 25 Year
  Sex: Male

DRUGS (2)
  1. CELEBREX [Suspect]
     Indication: PAIN
     Dosage: 200 MG, ORAL
     Route: 048
  2. WARFARIN SODIUM [Concomitant]

REACTIONS (4)
  - ANTIPHOSPHOLIPID SYNDROME [None]
  - ILIAC VEIN THROMBOSIS [None]
  - PULMONARY EMBOLISM [None]
  - VENA CAVA THROMBOSIS [None]
